FAERS Safety Report 9254717 (Version 2)
Quarter: 2013Q3

REPORT INFORMATION
  Report Type: Spontaneous
  Country: JP (occurrence: JP)
  Receive Date: 20130425
  Receipt Date: 20130701
  Transmission Date: 20140515
  Serious: Yes (Other)
  Sender: FDA-Public Use
  Company Number: JP-SANOFI-AVENTIS-2013SA041553

PATIENT
  Age: 10 Year
  Sex: Male
  Weight: 30.4 kg

DRUGS (4)
  1. ALLEGRA [Suspect]
     Indication: SEASONAL ALLERGY
     Route: 048
     Dates: start: 20130307, end: 20130310
  2. MEDICON [Suspect]
     Indication: UPPER RESPIRATORY TRACT INFLAMMATION
     Route: 048
     Dates: start: 20130307, end: 20130310
  3. JAPANESE ENCEPHALITIS VACCINE [Suspect]
     Indication: JAPANESE ENCEPHALITIS IMMUNISATION
     Route: 058
     Dates: start: 20130307, end: 20130307
  4. SAWATENE [Concomitant]
     Route: 048

REACTIONS (6)
  - Mood altered [Recovered/Resolved]
  - Dysgraphia [Recovered/Resolved]
  - Encephalopathy [Recovered/Resolved]
  - Mental impairment [Recovered/Resolved]
  - Dizziness [Recovered/Resolved]
  - Somnolence [Recovered/Resolved]
